FAERS Safety Report 8426014-2 (Version None)
Quarter: 2012Q2

REPORT INFORMATION
  Report Type: 
  Country: None (occurrence: None)
  Receive Date: 20120611
  Receipt Date: 20120109
  Transmission Date: 20120825
  Serious: No
  Sender: FDA-Public Use
  Company Number: US-MYLANLABS-2012S1000624

PATIENT
  Sex: Female

DRUGS (2)
  1. CIMETIDINE [Suspect]
  2. CIMETIDINE [Suspect]

REACTIONS (3)
  - OESOPHAGEAL DISCOMFORT [None]
  - DRUG INEFFECTIVE [None]
  - OESOPHAGEAL PAIN [None]
